FAERS Safety Report 19758175 (Version 1)
Quarter: 2021Q3

REPORT INFORMATION
  Report Type: Spontaneous
  Country: IN (occurrence: IN)
  Receive Date: 20210828
  Receipt Date: 20210828
  Transmission Date: 20211014
  Serious: Yes (Hospitalization, Other)
  Sender: FDA-Public Use
  Company Number: IN-AMICI-2021AMILIT00022

PATIENT
  Age: 60 Year
  Sex: Female

DRUGS (2)
  1. DICLOFENAC [Suspect]
     Active Substance: DICLOFENAC
     Indication: OSTEOARTHRITIS
     Route: 030
  2. TRIPHALA GUGGULU [Interacting]
     Active Substance: HERBALS
     Indication: EMBOLIA CUTIS MEDICAMENTOSA
     Dosage: MORNING AND NIGHT
     Route: 065

REACTIONS (12)
  - Musculoskeletal pain [Recovered/Resolved]
  - Pyrexia [Recovered/Resolved]
  - Skin discolouration [Recovered/Resolved]
  - Tenderness [Recovered/Resolved]
  - Tachypnoea [Recovered/Resolved]
  - Decreased appetite [Recovered/Resolved]
  - Oedema peripheral [Recovered/Resolved]
  - Chills [Recovered/Resolved]
  - Dry mouth [Recovered/Resolved]
  - Embolia cutis medicamentosa [Recovered/Resolved]
  - Tachycardia [Recovered/Resolved]
  - Skin necrosis [Recovered/Resolved]

NARRATIVE: CASE EVENT DATE: 201801
